FAERS Safety Report 9483333 (Version 1)
Quarter: 2013Q3

REPORT INFORMATION
  Report Type: Spontaneous
  Country: FR (occurrence: FR)
  Receive Date: 20130828
  Receipt Date: 20130828
  Transmission Date: 20140515
  Serious: Yes (Other)
  Sender: FDA-Public Use
  Company Number: FR-CELGENEUS-056-21880-13082252

PATIENT
  Age: 70 Year
  Sex: Male

DRUGS (3)
  1. REVLIMID [Suspect]
     Indication: PLASMA CELL MYELOMA
     Route: 048
  2. DEXAMETHASONE [Concomitant]
     Indication: PLASMA CELL MYELOMA
     Route: 065
  3. ANTI-CS1 ANTIBODY [Concomitant]
     Indication: PLASMA CELL MYELOMA
     Route: 065

REACTIONS (8)
  - Memory impairment [Unknown]
  - White matter lesion [Unknown]
  - Cognitive disorder [Recovering/Resolving]
  - Cerebral atrophy [Unknown]
  - Amnesia [Recovering/Resolving]
  - Apathy [Recovering/Resolving]
  - Dermatitis exfoliative [Unknown]
  - Aphasia [Unknown]
